FAERS Safety Report 5095421-0 (Version None)
Quarter: 2006Q3

REPORT INFORMATION
  Report Type: 
  Country: None (occurrence: None)
  Receive Date: 20060901
  Receipt Date: 20060821
  Transmission Date: 20061208
  Serious: Yes (Hospitalization)
  Sender: FDA-Public Use
  Company Number: FR-ROCHE-460285

PATIENT
  Age: 60 Year
  Sex: Male
  Weight: 109 kg

DRUGS (14)
  1. ROCEPHIN [Suspect]
     Indication: OSTEITIS
     Route: 065
     Dates: start: 20060630, end: 20060710
  2. VANCOMYCIN [Suspect]
     Indication: OSTEITIS
     Route: 065
     Dates: start: 20060630, end: 20060706
  3. VANCOMYCIN [Suspect]
     Route: 065
     Dates: start: 20060707, end: 20060710
  4. ADALAT [Concomitant]
  5. TENORMIN [Concomitant]
  6. LASILIX [Concomitant]
  7. HYPERIUM [Concomitant]
  8. FORLAX [Concomitant]
  9. TEMESTA [Concomitant]
  10. PROZAC [Concomitant]
  11. FONZYLANE [Concomitant]
  12. ACETAMINOPHEN [Concomitant]
  13. EUCALCIC [Concomitant]
  14. CALCIPARINE [Concomitant]

REACTIONS (1)
  - RENAL FAILURE ACUTE [None]
